FAERS Safety Report 18489417 (Version 1)
Quarter: 2020Q4

REPORT INFORMATION
  Report Type: Spontaneous
  Country: US (occurrence: US)
  Receive Date: 20201111
  Receipt Date: 20201111
  Transmission Date: 20210114
  Serious: No
  Sender: FDA-Public Use
  Company Number: US-SA-2020SA311526

PATIENT

DRUGS (1)
  1. DUPIXENT [Suspect]
     Active Substance: DUPILUMAB
     Dosage: 600 MG, 1X
     Route: 058
     Dates: start: 20201029, end: 20201029

REACTIONS (3)
  - Condition aggravated [Unknown]
  - Therapeutic response decreased [Unknown]
  - Pruritus [Unknown]

NARRATIVE: CASE EVENT DATE: 2020
